FAERS Safety Report 4704684-X (Version None)
Quarter: 2005Q2

REPORT INFORMATION
  Report Type: 
  Country: None (occurrence: None)
  Receive Date: 20050630
  Receipt Date: 20050617
  Transmission Date: 20051028
  Serious: Yes (Hospitalization, Other)
  Sender: FDA-Public Use
  Company Number: 2005090217

PATIENT
  Sex: Female
  Weight: 73.4827 kg

DRUGS (27)
  1. NITROSTAT [Suspect]
     Indication: CARDIAC DISORDER
     Dosage: (0.4 MG, PRN), SUBLINGUAL
     Route: 060
  2. LASIX [Concomitant]
  3. ALLEGRA [Concomitant]
  4. PROTONIX [Concomitant]
  5. MAGNESIUM OXIDE (MAGNESIUM OXIDE) [Concomitant]
  6. FOLIC ACID [Concomitant]
  7. IMDUR [Concomitant]
  8. COREG [Concomitant]
  9. ALTACE [Concomitant]
  10. ASPIRIN [Concomitant]
  11. GLYBURIDE [Concomitant]
  12. XANAX [Concomitant]
  13. LIPITOR [Concomitant]
  14. HYDROCODONE BITARTRATE [Concomitant]
  15. CALCIUM/MINERALS/VITAMIN D (CALCIUM, ERGOCALCIFEROL, MINERALS NOS) [Concomitant]
  16. NIFEREX (POLYSACCHARIDE-IRON COMPLEX) [Concomitant]
  17. IRON (IRON) [Concomitant]
  18. HYTONE (HYDROCORTISONE) [Concomitant]
  19. GLUCOSAMINE SULFATE (GLUCOSAMINE SULFATE) [Concomitant]
  20. COENZYME Q10 [Concomitant]
  21. FLAXSEED OIL (LINSEED OIL) [Concomitant]
  22. EVENING PRIMROSE OIL (EVENING PRIMROSE OIL) [Concomitant]
  23. VITAMIN E [Concomitant]
  24. CRANBERRY (VACCINIUM MACROCARPON) [Concomitant]
  25. FISH OIL (FISH OIL) [Concomitant]
  26. CENTRUM SILVER (ASCORBIC ACID, CALCIUM, MINERALS NOS, RETINOL, TOCOPHE [Concomitant]
  27. SPIRONOLACTONE [Concomitant]

REACTIONS (13)
  - BLOOD DISORDER [None]
  - CARDIAC VALVE DISEASE [None]
  - CATARACT [None]
  - CHOLECYSTECTOMY [None]
  - COLD SWEAT [None]
  - HEPATOMEGALY [None]
  - MYALGIA [None]
  - MYOCARDIAL INFARCTION [None]
  - PERICARDIAL EFFUSION [None]
  - SKIN DISCOLOURATION [None]
  - STAPHYLOCOCCAL INFECTION [None]
  - SYNCOPE [None]
  - WEIGHT DECREASED [None]
